FAERS Safety Report 15678470 (Version 1)
Quarter: 2018Q4

REPORT INFORMATION
  Report Type: Spontaneous
  Country: US (occurrence: US)
  Receive Date: 20181201
  Receipt Date: 20181201
  Transmission Date: 20190205
  Serious: No
  Sender: FDA-Public Use
  Company Number: US-ASTRAZENECA-2018SF49319

PATIENT
  Age: 58 Year
  Sex: Female
  Weight: 73.9 kg

DRUGS (7)
  1. SYMBICORT [Suspect]
     Active Substance: BUDESONIDE\FORMOTEROL FUMARATE DIHYDRATE
     Indication: INFLUENZA
     Dosage: 160-4.5 UG 2 PUFFS TWO TIMES A DAY
     Route: 055
     Dates: start: 2017
  2. SYMBICORT [Suspect]
     Active Substance: BUDESONIDE\FORMOTEROL FUMARATE DIHYDRATE
     Indication: SEPSIS
     Dosage: 160-4.5 UG 2 PUFFS TWO TIMES A DAY
     Route: 055
     Dates: start: 2017
  3. SINGULAIR [Concomitant]
     Active Substance: MONTELUKAST SODIUM
     Indication: ASTHMA
     Route: 048
     Dates: start: 2016
  4. SINGULAIR [Concomitant]
     Active Substance: MONTELUKAST SODIUM
     Indication: HYPERSENSITIVITY
     Route: 048
     Dates: start: 2016
  5. SYMBICORT [Suspect]
     Active Substance: BUDESONIDE\FORMOTEROL FUMARATE DIHYDRATE
     Indication: ASTHMA
     Dosage: 160-4.5 UG 2 PUFFS TWO TIMES A DAY
     Route: 055
     Dates: start: 2017
  6. SYMBICORT [Suspect]
     Active Substance: BUDESONIDE\FORMOTEROL FUMARATE DIHYDRATE
     Indication: PNEUMONIA
     Dosage: 160-4.5 UG 2 PUFFS TWO TIMES A DAY
     Route: 055
     Dates: start: 2017
  7. XYZAL [Concomitant]
     Active Substance: LEVOCETIRIZINE DIHYDROCHLORIDE
     Indication: HYPERSENSITIVITY
     Route: 048
     Dates: start: 201805

REACTIONS (7)
  - Off label use [Unknown]
  - Candida infection [Recovering/Resolving]
  - Bronchitis [Recovering/Resolving]
  - Panic reaction [Unknown]
  - Haemoptysis [Not Recovered/Not Resolved]
  - Product use in unapproved indication [Unknown]
  - Seasonal allergy [Unknown]

NARRATIVE: CASE EVENT DATE: 2016
